FAERS Safety Report 13459751 (Version 2)
Quarter: 2017Q3

REPORT INFORMATION
  Report Type: Report from Study
  Country: US (occurrence: US)
  Receive Date: 20170420
  Receipt Date: 20170713
  Transmission Date: 20171127
  Serious: Yes (Death, Other)
  Sender: FDA-Public Use
  Company Number: US-SUN PHARMACEUTICAL INDUSTRIES LTD-2017US-138661

PATIENT
  Age: 36 Year
  Sex: Female

DRUGS (7)
  1. ERYTHROMYCIN. [Suspect]
     Active Substance: ERYTHROMYCIN
     Indication: ACUTE MYELOID LEUKAEMIA
     Route: 065
  2. PENICILLIN [Suspect]
     Active Substance: PENICILLIN
     Indication: ACUTE MYELOID LEUKAEMIA
     Route: 065
  3. METHYL GAG [Suspect]
     Active Substance: MITOGUAZONE
     Indication: ACUTE MYELOID LEUKAEMIA
     Route: 065
  4. OXACILLIN [Suspect]
     Active Substance: OXACILLIN SODIUM
     Indication: ACUTE MYELOID LEUKAEMIA
     Route: 065
  5. TETRACYCLINE [Suspect]
     Active Substance: TETRACYCLINE
     Indication: ACUTE MYELOID LEUKAEMIA
     Route: 065
  6. PREDNISONE. [Suspect]
     Active Substance: PREDNISONE
     Indication: ACUTE MYELOID LEUKAEMIA
     Route: 065
  7. 6-MERACPTOPURINE [Suspect]
     Active Substance: MERCAPTOPURINE ANHYDROUS
     Indication: ACUTE MYELOID LEUKAEMIA
     Route: 065

REACTIONS (4)
  - Sepsis [Fatal]
  - Premature delivery [Unknown]
  - Acute myeloid leukaemia recurrent [Fatal]
  - Exposure during pregnancy [Unknown]
